FAERS Safety Report 9276318 (Version 1)
Quarter: 2013Q2

REPORT INFORMATION
  Report Type: Spontaneous
  Country: BR (occurrence: BR)
  Receive Date: 20130507
  Receipt Date: 20130507
  Transmission Date: 20140414
  Serious: Yes (Other)
  Sender: FDA-Public Use
  Company Number: BR-AMGEN-BRASP2013021887

PATIENT
  Age: 54 Year
  Sex: Male
  Weight: 88 kg

DRUGS (3)
  1. ENBREL [Suspect]
     Indication: PSORIATIC ARTHROPATHY
     Dosage: 50 MG, ONCE WEEKLY
     Dates: start: 201210
  2. ENBREL [Suspect]
     Dosage: 50 MG, EVERY 45 DAYS
  3. ABLOK PLUS [Concomitant]
     Dosage: 100/25 MG

REACTIONS (10)
  - Psoriatic arthropathy [Recovering/Resolving]
  - Intentional drug misuse [Not Recovered/Not Resolved]
  - Activities of daily living impaired [Recovering/Resolving]
  - Hypersensitivity [Recovering/Resolving]
  - Cheilitis [Recovering/Resolving]
  - Pain [Recovering/Resolving]
  - Onychomadesis [Recovering/Resolving]
  - Nail pigmentation [Recovering/Resolving]
  - Pruritus [Unknown]
  - Wound [Unknown]
